FAERS Safety Report 9491446 (Version 1)
Quarter: 2013Q1

REPORT INFORMATION
  Report Type: Not Available
  Country: US (occurrence: US)
  Receive Date: 20120619
  Receipt Date: 20120619
  Transmission Date: 20140127
  Serious: Yes (Hospitalization)
  Sender: FDA-Public Use
  Company Number: US-LUNDBECK-DKLU1076768

PATIENT
  Age: 39 None
  Sex: Female
  Weight: 91 kg

DRUGS (5)
  1. ONFI [Suspect]
     Indication: EPILEPSY
     Route: 048
  2. ONFI [Suspect]
     Route: 048
     Dates: start: 20120202
  3. KEPPRA [Concomitant]
     Indication: CONVULSION
  4. LAMICTAL [Concomitant]
     Indication: CONVULSION
     Dates: end: 20120206
  5. ACETAMINOPHEN WITH CODEINE [Concomitant]
     Indication: PAIN

REACTIONS (3)
  - Convulsion [Recovering/Resolving]
  - Haemoptysis [Recovered/Resolved]
  - Cough [Recovering/Resolving]
